FAERS Safety Report 7198495-6 (Version None)
Quarter: 2010Q4

REPORT INFORMATION
  Report Type: 
  Country: None (occurrence: None)
  Receive Date: 20101227
  Receipt Date: 20101221
  Transmission Date: 20110411
  Serious: Yes (Life-Threatening, Hospitalization, Other)
  Sender: FDA-Public Use
  Company Number: PHHY2010US71404

PATIENT
  Sex: Male

DRUGS (1)
  1. GLEEVEC [Suspect]
     Dosage: 300 MG, QD
     Route: 048
     Dates: start: 20070201

REACTIONS (13)
  - ABDOMINAL PAIN [None]
  - ASCITES [None]
  - FATIGUE [None]
  - FLUID RETENTION [None]
  - GAIT DISTURBANCE [None]
  - HEPATIC CIRRHOSIS [None]
  - HEPATIC FAILURE [None]
  - IMPAIRED DRIVING ABILITY [None]
  - JAUNDICE [None]
  - MENTAL STATUS CHANGES [None]
  - NAUSEA [None]
  - TRANSFUSION [None]
  - URINE COLOUR ABNORMAL [None]
